FAERS Safety Report 10956329 (Version 2)
Quarter: 2015Q1

REPORT INFORMATION
  Report Type: Spontaneous
  Country: IT (occurrence: IT)
  Receive Date: 20150326
  Receipt Date: 20150330
  Transmission Date: 20150721
  Serious: Yes (Hospitalization)
  Sender: FDA-Public Use
  Company Number: IT-009507513-1503ITA011806

PATIENT
  Age: 45 Year
  Sex: Female
  Weight: 41 kg

DRUGS (2)
  1. CERAZETTE [Suspect]
     Active Substance: DESOGESTREL
     Indication: ORAL CONTRACEPTION
     Dosage: 75 MG, QD
     Route: 048
     Dates: start: 20140501, end: 20150313
  2. MERCILON [Suspect]
     Active Substance: DESOGESTREL\ETHINYL ESTRADIOL
     Indication: ORAL CONTRACEPTION
     Dosage: UNK
     Route: 048
     Dates: end: 20140501

REACTIONS (3)
  - Renal lithiasis prophylaxis [Recovering/Resolving]
  - Superior sagittal sinus thrombosis [Recovering/Resolving]
  - Migraine without aura [Recovering/Resolving]

NARRATIVE: CASE EVENT DATE: 20150313
